FAERS Safety Report 4469818-3 (Version None)
Quarter: 2004Q4

REPORT INFORMATION
  Report Type: 
  Country: None (occurrence: None)
  Receive Date: 20041008
  Receipt Date: 20041002
  Transmission Date: 20050328
  Serious: Yes (Other)
  Sender: FDA-Public Use
  Company Number: GB-GLAXOSMITHKLINE-B0346989A

PATIENT
  Age: 46 Year
  Sex: Female
  Weight: 59 kg

DRUGS (1)
  1. ZYBAN [Suspect]
     Dosage: 150MG SEE DOSAGE TEXT
     Route: 048
     Dates: start: 20040827, end: 20040911

REACTIONS (4)
  - SWELLING [None]
  - SWELLING FACE [None]
  - URTICARIA [None]
  - WHEEZING [None]
